FAERS Safety Report 19265928 (Version 3)
Quarter: 2021Q2

REPORT INFORMATION
  Report Type: Report from Study
  Country: None (occurrence: US)
  Receive Date: 20210518
  Receipt Date: 20210618
  Transmission Date: 20210717
  Serious: No
  Sender: FDA-Public Use
  Company Number: US-ABBVIE-21K-163-3900452-00

PATIENT
  Age: 78 Year
  Sex: Male
  Weight: 74 kg

DRUGS (8)
  1. METOPROLOL. [Concomitant]
     Active Substance: METOPROLOL
     Indication: ATRIAL FIBRILLATION
  2. LISINOPRIL. [Concomitant]
     Active Substance: LISINOPRIL
     Indication: HYPERTENSION
  3. COVID?19 VACCINE [Concomitant]
     Indication: COVID-19 IMMUNISATION
     Dosage: JOHNSON AND JOHNSONS
     Route: 030
     Dates: start: 20210304, end: 20210304
  4. LEVOTHYROXINE. [Concomitant]
     Active Substance: LEVOTHYROXINE
     Indication: HYPOTHYROIDISM
  5. CREON [Suspect]
     Active Substance: PANCRELIPASE AMYLASE\PANCRELIPASE LIPASE\PANCRELIPASE PROTEASE
     Indication: PANCREATIC FAILURE
     Dosage: THREE CAPSULES PER MEAL
     Route: 048
     Dates: start: 20210415, end: 20210524
  6. LIPITOR [Concomitant]
     Active Substance: ATORVASTATIN CALCIUM
     Indication: BLOOD CHOLESTEROL INCREASED
  7. INSULIN [Concomitant]
     Active Substance: INSULIN NOS
     Indication: DIABETES MELLITUS
     Dosage: INSULIN PEN
  8. COUMADIN [Concomitant]
     Active Substance: WARFARIN SODIUM
     Indication: ATRIAL FIBRILLATION

REACTIONS (1)
  - Diarrhoea [Recovered/Resolved]

NARRATIVE: CASE EVENT DATE: 202105
